FAERS Safety Report 21456571 (Version 2)
Quarter: 2022Q4

REPORT INFORMATION
  Report Type: Spontaneous
  Country: GB (occurrence: GB)
  Receive Date: 20221014
  Receipt Date: 20221015
  Transmission Date: 20230112
  Serious: Yes (Hospitalization, Other)
  Sender: FDA-Public Use
  Company Number: GB-CELLTRION INC.-2019GB028876

PATIENT

DRUGS (9)
  1. RITUXIMAB [Suspect]
     Active Substance: RITUXIMAB
     Indication: Post transplant lymphoproliferative disorder
     Dosage: R-CVP REGIMEN IN HOSPITAL
  2. RITUXIMAB [Suspect]
     Active Substance: RITUXIMAB
     Dosage: R-CHOP REGIMEN AS AN OUTPATIENT; COMPLETED A TOTAL OF 6 CYCLES OF THE CHEMOTHERAPY
  3. CYCLOPHOSPHAMIDE [Suspect]
     Active Substance: CYCLOPHOSPHAMIDE
     Indication: Post transplant lymphoproliferative disorder
     Dosage: R-CVP REGIMEN IN HOSPITAL
  4. CYCLOPHOSPHAMIDE [Suspect]
     Active Substance: CYCLOPHOSPHAMIDE
     Dosage: R-CHOP REGIMEN AS AN OUTPATIENT; COMPLETED A TOTAL OF 6 CYCLES OF THE CHEMOTHERAPY
  5. PREDNISOLONE [Suspect]
     Active Substance: PREDNISOLONE
     Indication: Post transplant lymphoproliferative disorder
     Dosage: R-CVP REGIMEN IN HOSPITAL
     Route: 065
  6. PREDNISOLONE [Suspect]
     Active Substance: PREDNISOLONE
     Dosage: R-CHOP REGIMEN AS AN OUTPATIENT; COMPLETED A TOTAL OF 6 CYCLES OF THE CHEMOTHERAPY
     Route: 065
  7. VINCRISTINE [Suspect]
     Active Substance: VINCRISTINE
     Indication: Post transplant lymphoproliferative disorder
     Dosage: R-CVP REGIMEN IN HOSPITAL
     Route: 065
  8. VINCRISTINE [Suspect]
     Active Substance: VINCRISTINE
     Dosage: R-CHOP REGIMEN AS AN OUTPATIENT; COMPLETED A TOTAL OF 6 CYCLES OF THE CHEMOTHERAPY
     Route: 065
  9. DOXORUBICIN [Suspect]
     Active Substance: DOXORUBICIN
     Indication: Post transplant lymphoproliferative disorder
     Dosage: R-CHOP REGIMEN AS AN OUTPATIENT; COMPLETED A TOTAL OF 6 CYCLES OF THE CHEMOTHERAPY

REACTIONS (2)
  - Acute kidney injury [Unknown]
  - Diarrhoea [Unknown]
